FAERS Safety Report 9025116 (Version 1)
Quarter: 2013Q1

REPORT INFORMATION
  Report Type: Other
  Country: IT (occurrence: IT)
  Receive Date: 20130122
  Receipt Date: 20130122
  Transmission Date: 20140127
  Serious: Yes (Other)
  Sender: FDA-Public Use
  Company Number: IT-WATSON-2013-00569

PATIENT
  Age: 4 Year
  Sex: Male

DRUGS (1)
  1. IBUPROFEN (UNKNOWN) [Suspect]
     Indication: PYREXIA
     Dosage: 100 MG, SINGLE
     Route: 048
     Dates: start: 20121213, end: 20121213

REACTIONS (1)
  - Eyelid oedema [Recovering/Resolving]
